FAERS Safety Report 9227048 (Version 2)
Quarter: 2013Q2

REPORT INFORMATION
  Report Type: Spontaneous
  Country: FR (occurrence: None)
  Receive Date: 20130410
  Receipt Date: 20130507
  Transmission Date: 20140414
  Serious: Yes (Hospitalization)
  Sender: FDA-Public Use
  Company Number: SP06543

PATIENT
  Sex: Male

DRUGS (2)
  1. OSMOPREP [Suspect]
     Indication: COLONOSCOPY
     Dosage: (SEE TEXT)
     Route: 048
     Dates: start: 20130212, end: 20130213
  2. OSMOPREP [Suspect]
     Indication: BOWEL PREPARATION
     Dosage: (SEE TEXT)
     Route: 048
     Dates: start: 20130212, end: 20130213

REACTIONS (5)
  - Syncope [None]
  - Fall [None]
  - Head injury [None]
  - Vomiting [None]
  - Road traffic accident [None]
